FAERS Safety Report 8479668-9 (Version None)
Quarter: 2012Q2

REPORT INFORMATION
  Report Type: 
  Country: None (occurrence: None)
  Receive Date: 20120629
  Receipt Date: 20120627
  Transmission Date: 20120825
  Serious: Yes (Death, Hospitalization)
  Sender: FDA-Public Use
  Company Number: PHHY2012US055488

PATIENT
  Sex: Male

DRUGS (2)
  1. ASPIRIN [Concomitant]
  2. BUFFERIN [Suspect]
     Route: 048

REACTIONS (4)
  - INJURY [None]
  - WRONG TECHNIQUE IN DRUG USAGE PROCESS [None]
  - DEATH [None]
  - HAEMORRHAGE [None]
